FAERS Safety Report 5037221-3 (Version None)
Quarter: 2006Q2

REPORT INFORMATION
  Report Type: 
  Country: None (occurrence: None)
  Receive Date: 20060628
  Receipt Date: 20060622
  Transmission Date: 20061013
  Serious: Yes (Hospitalization)
  Sender: FDA-Public Use
  Company Number: PHEH2006US08175

PATIENT
  Age: 57 Year
  Sex: Male
  Weight: 218 kg

DRUGS (5)
  1. ENABLEX [Suspect]
     Dosage: 7.5 MG, UNK
     Dates: start: 20050612
  2. ENABLEX [Suspect]
     Dosage: 15 MG, QD
  3. LIPITOR                                 /NET/ [Concomitant]
  4. LEVOXYL [Concomitant]
     Dosage: 25 UG, QD
  5. LITHIUM CARBONATE [Suspect]
     Dosage: 300 MG, TID

REACTIONS (2)
  - PSYCHOTIC DISORDER [None]
  - THERAPEUTIC AGENT TOXICITY [None]
